FAERS Safety Report 10748052 (Version 1)
Quarter: 2015Q1

REPORT INFORMATION
  Report Type: Spontaneous
  Country: US (occurrence: None)
  Receive Date: 20150128
  Receipt Date: 20150128
  Transmission Date: 20150721
  Serious: Yes (Hospitalization)
  Sender: FDA-Public Use
  Company Number: None

PATIENT
  Age: 62 Year
  Sex: Male
  Weight: 88.3 kg

DRUGS (2)
  1. HYDROCHLOROTHIAZIDE. [Suspect]
     Active Substance: HYDROCHLOROTHIAZIDE
     Indication: HYPERLIPIDAEMIA
     Route: 048
     Dates: start: 20130606, end: 20141001
  2. ALLOPURINOL. [Suspect]
     Active Substance: ALLOPURINOL
     Indication: NEOPLASM MALIGNANT
     Route: 048
     Dates: start: 20141012, end: 20141120

REACTIONS (3)
  - Dizziness [None]
  - Dyspnoea exertional [None]
  - Rash [None]

NARRATIVE: CASE EVENT DATE: 20141120
